FAERS Safety Report 20912963 (Version 7)
Quarter: 2022Q3

REPORT INFORMATION
  Report Type: Report from Study
  Country: US (occurrence: US)
  Receive Date: 20220603
  Receipt Date: 20220918
  Transmission Date: 20221027
  Serious: Yes (Hospitalization, Other)
  Sender: FDA-Public Use
  Company Number: US-TAKEDA-2022TUS013811

PATIENT
  Sex: Female
  Weight: 60 kg

DRUGS (30)
  1. TEDUGLUTIDE [Suspect]
     Active Substance: TEDUGLUTIDE
     Indication: Short-bowel syndrome
     Dosage: 0.3 MILLILITER, QD
     Route: 058
     Dates: start: 20211202
  2. TEDUGLUTIDE [Suspect]
     Active Substance: TEDUGLUTIDE
     Indication: Short-bowel syndrome
     Dosage: 0.3 MILLILITER, QD
     Route: 058
     Dates: start: 20211202
  3. TEDUGLUTIDE [Suspect]
     Active Substance: TEDUGLUTIDE
     Indication: Short-bowel syndrome
     Dosage: 0.3 MILLILITER, QD
     Route: 058
     Dates: start: 20211202
  4. TEDUGLUTIDE [Suspect]
     Active Substance: TEDUGLUTIDE
     Indication: Short-bowel syndrome
     Dosage: 0.3 MILLILITER, QD
     Route: 058
     Dates: start: 20211202
  5. TEDUGLUTIDE [Suspect]
     Active Substance: TEDUGLUTIDE
     Dosage: 0.3 MILILITER, QD
     Route: 058
     Dates: end: 20220419
  6. TEDUGLUTIDE [Suspect]
     Active Substance: TEDUGLUTIDE
     Dosage: 0.3 MILILITER, QD
     Route: 058
     Dates: end: 20220419
  7. TEDUGLUTIDE [Suspect]
     Active Substance: TEDUGLUTIDE
     Dosage: 0.3 MILILITER, QD
     Route: 058
     Dates: end: 20220419
  8. TEDUGLUTIDE [Suspect]
     Active Substance: TEDUGLUTIDE
     Dosage: 0.3 MILILITER, QD
     Route: 058
     Dates: end: 20220419
  9. TEDUGLUTIDE [Suspect]
     Active Substance: TEDUGLUTIDE
     Dosage: 0.28 MILLILITER, QD
     Route: 058
     Dates: start: 20211202
  10. TEDUGLUTIDE [Suspect]
     Active Substance: TEDUGLUTIDE
     Dosage: 0.28 MILLILITER, QD
     Route: 058
     Dates: start: 20211202
  11. TEDUGLUTIDE [Suspect]
     Active Substance: TEDUGLUTIDE
     Dosage: 0.28 MILLILITER, QD
     Route: 058
     Dates: start: 20211202
  12. TEDUGLUTIDE [Suspect]
     Active Substance: TEDUGLUTIDE
     Dosage: 0.28 MILLILITER, QD
     Route: 058
     Dates: start: 20211202
  13. MACROBID [Concomitant]
     Active Substance: NITROFURANTOIN\NITROFURANTOIN MONOHYDRATE
     Dosage: 100 MILLIGRAM
     Route: 065
  14. TERAZOSIN HYDROCHLORIDE [Concomitant]
     Active Substance: TERAZOSIN HYDROCHLORIDE
     Dosage: 10 MILLIGRAM
     Route: 065
  15. PERCOCET [Concomitant]
     Active Substance: ACETAMINOPHEN\OXYCODONE HYDROCHLORIDE
     Dosage: 10 MG TO 325 MG TABLET
     Route: 065
  16. RIFAXIMIN [Concomitant]
     Active Substance: RIFAXIMIN
     Route: 065
  17. VITAMIN D3 [Concomitant]
     Active Substance: CHOLECALCIFEROL
     Dosage: 10 MICROGRAM
     Route: 065
  18. VITAMINS [Concomitant]
     Active Substance: VITAMINS
     Route: 065
  19. ARMOUR THYROID [Concomitant]
     Active Substance: THYROID, PORCINE
     Dosage: 120 MILLIGRAM
     Route: 065
  20. DICLOFENAC SODIUM [Concomitant]
     Active Substance: DICLOFENAC SODIUM
     Route: 065
  21. ESTRADIOL [Concomitant]
     Active Substance: ESTRADIOL
     Dosage: UNK, 1/WEEK
     Route: 065
  22. LIDOCAINE\PRILOCAINE [Concomitant]
     Active Substance: LIDOCAINE\PRILOCAINE
     Route: 065
  23. HYDROXYZINE HYDROCHLORIDE [Concomitant]
     Active Substance: HYDROXYZINE HYDROCHLORIDE
     Dosage: 10 MILLIGRAM
     Route: 065
  24. PROMETHAZINE HYDROCHLORIDE [Concomitant]
     Active Substance: PROMETHAZINE HYDROCHLORIDE
     Dosage: 25 MILLIGRAM
     Route: 065
  25. ZOFRAN [Concomitant]
     Active Substance: ONDANSETRON HYDROCHLORIDE
     Dosage: 4 MILLIGRAM
     Route: 065
  26. FENTANYL [Concomitant]
     Active Substance: FENTANYL
     Dosage: 100 MICROGRAM
     Route: 065
  27. DICYCLOMINE HYDROCHLORIDE [Concomitant]
     Active Substance: DICYCLOMINE HYDROCHLORIDE
     Dosage: 10 MILLIGRAM
     Route: 065
  28. CYCLOBENZAPRINE HYDROCHLORIDE [Concomitant]
     Active Substance: CYCLOBENZAPRINE HYDROCHLORIDE
     Dosage: 10 MILLIGRAM
     Route: 065
  29. GABAPENTIN [Concomitant]
     Active Substance: GABAPENTIN
     Route: 065
  30. NYSTATIN AND TRIAMCINOLONE [Concomitant]
     Active Substance: NYSTATIN\TRIAMCINOLONE ACETONIDE

REACTIONS (17)
  - Surgery [Unknown]
  - Hospitalisation [Unknown]
  - Intestinal obstruction [Unknown]
  - Ascites [Unknown]
  - Weight increased [Unknown]
  - Gastrointestinal stoma output increased [Unknown]
  - Hunger [Unknown]
  - Injection site bruising [Unknown]
  - Injection site haemorrhage [Unknown]
  - Stoma site inflammation [Unknown]
  - Amnesia [Unknown]
  - Weight fluctuation [Unknown]
  - Peripheral swelling [Unknown]
  - Memory impairment [Unknown]
  - Somnolence [Unknown]
  - Swelling [Unknown]
  - Respiratory tract infection [Unknown]
